FAERS Safety Report 11596159 (Version 1)
Quarter: 2015Q4

REPORT INFORMATION
  Report Type: Report from Study
  Country: US (occurrence: US)
  Receive Date: 20151006
  Receipt Date: 20151006
  Transmission Date: 20160304
  Serious: Yes (Hospitalization, Other)
  Sender: FDA-Public Use
  Company Number: US-MALLINCKRODT-T201503442

PATIENT
  Age: 52 Year
  Sex: Male

DRUGS (2)
  1. REPOSITORY CORTICOTROPIN INJECTION [Suspect]
     Active Substance: CORTICOTROPIN
     Indication: GLOMERULONEPHRITIS MEMBRANOPROLIFERATIVE
     Dosage: 80 UNITS, 2X A WEEK
     Route: 058
     Dates: start: 20150618, end: 20150910
  2. INSULIN [Concomitant]
     Active Substance: INSULIN NOS
     Indication: DIABETES MELLITUS

REACTIONS (7)
  - Fluid retention [Not Recovered/Not Resolved]
  - Blood glucose increased [Unknown]
  - Unevaluable event [Not Recovered/Not Resolved]
  - Weight increased [Unknown]
  - Hepatic failure [Not Recovered/Not Resolved]
  - Protein total increased [Unknown]
  - Abdominal distension [Unknown]

NARRATIVE: CASE EVENT DATE: 20150618
